FAERS Safety Report 13364514 (Version 1)
Quarter: 2017Q1

REPORT INFORMATION
  Report Type: Spontaneous
  Country: US (occurrence: US)
  Receive Date: 20170323
  Receipt Date: 20170323
  Transmission Date: 20170429
  Serious: No
  Sender: FDA-Public Use
  Company Number: US-ROCHE-1363789

PATIENT
  Age: 77 Year
  Sex: Male

DRUGS (20)
  1. SINGULAIR [Concomitant]
     Active Substance: MONTELUKAST SODIUM
     Route: 065
  2. ATORVASTATIN [Concomitant]
     Active Substance: ATORVASTATIN
     Route: 065
  3. LASIX [Concomitant]
     Active Substance: FUROSEMIDE
     Route: 065
  4. CARVEDILOL. [Concomitant]
     Active Substance: CARVEDILOL
     Route: 065
  5. VITAMIN B3 [Concomitant]
     Active Substance: NIACIN
     Dosage: 2000 UNITS
     Route: 065
  6. XOLAIR [Suspect]
     Active Substance: OMALIZUMAB
     Indication: ASTHMA
     Route: 058
     Dates: start: 20140210
  7. RAMIPRIL. [Concomitant]
     Active Substance: RAMIPRIL
     Route: 065
  8. FISH OIL [Concomitant]
     Active Substance: FISH OIL
     Route: 065
  9. TRIAMCINOLONE [Concomitant]
     Active Substance: TRIAMCINOLONE
     Dosage: AS NEEDED
     Route: 065
  10. TOPICORT (UNITED STATES) [Concomitant]
     Dosage: AS NEEDED
     Route: 065
  11. EPIPEN [Concomitant]
     Active Substance: EPINEPHRINE
     Dosage: AS NEEDED
     Route: 065
  12. HYDROCHLOROTHIAZIDE. [Concomitant]
     Active Substance: HYDROCHLOROTHIAZIDE
     Route: 065
  13. CLOBETASOL [Concomitant]
     Active Substance: CLOBETASOL
     Dosage: AS NEEDED
     Route: 065
  14. AMIODARONE [Concomitant]
     Active Substance: AMIODARONE
     Route: 065
  15. SYNTHROID [Concomitant]
     Active Substance: LEVOTHYROXINE SODIUM
     Route: 065
  16. NASONEX [Concomitant]
     Active Substance: MOMETASONE FUROATE
     Dosage: 2 SPRAYS EACH NOSTRIL
     Route: 065
  17. NEURONTIN [Concomitant]
     Active Substance: GABAPENTIN
     Route: 065
  18. RESTASIS [Concomitant]
     Active Substance: CYCLOSPORINE
     Dosage: EACH EYE
     Route: 065
  19. ASPIRIN. [Concomitant]
     Active Substance: ASPIRIN
     Route: 065
  20. XARELTO [Concomitant]
     Active Substance: RIVAROXABAN
     Route: 065

REACTIONS (6)
  - Wheezing [Not Recovered/Not Resolved]
  - Diarrhoea [Recovered/Resolved]
  - Dyspnoea [Not Recovered/Not Resolved]
  - Wheezing [Not Recovered/Not Resolved]
  - Diarrhoea [Recovered/Resolved]
  - Dyspnoea [Not Recovered/Not Resolved]

NARRATIVE: CASE EVENT DATE: 20140210
